FAERS Safety Report 18555784 (Version 2)
Quarter: 2021Q3

REPORT INFORMATION
  Report Type: Spontaneous
  Country: US (occurrence: US)
  Receive Date: 20201127
  Receipt Date: 20210806
  Transmission Date: 20211014
  Serious: No
  Sender: FDA-Public Use
  Company Number: US-MYLANLABS-2020M1097183

PATIENT
  Age: 13 Year
  Sex: Male

DRUGS (2)
  1. BUDESONIDE. [Concomitant]
     Active Substance: BUDESONIDE
     Dosage: UNK
  2. EPINEPHRINE INJECTION USP AUTO?INJECTOR [Suspect]
     Active Substance: EPINEPHRINE
     Indication: HYPERSENSITIVITY
     Dosage: 0.3 MILLIGRAM, PRN (AS NEEDED)
     Route: 058

REACTIONS (3)
  - Product quality issue [None]
  - Device leakage [None]
  - Product colour issue [None]

NARRATIVE: CASE EVENT DATE: 20201118
